FAERS Safety Report 19989805 (Version 1)
Quarter: 2021Q4

REPORT INFORMATION
  Report Type: Spontaneous
  Country: US (occurrence: US)
  Receive Date: 20211021
  Receipt Date: 20211021
  Transmission Date: 20220303
  Serious: Yes (Hospitalization)
  Sender: FDA-Public Use
  Company Number: None

PATIENT
  Age: 54 Year
  Sex: Male

DRUGS (2)
  1. ICATIBANT [Suspect]
     Active Substance: ICATIBANT ACETATE
     Indication: Immunodeficiency
     Dosage: ?          OTHER DOSE:30 MG/2ML;????OTHER FREQUENCY : UD
     Route: 058
     Dates: start: 20210612
  2. ICATIBANT [Suspect]
     Active Substance: ICATIBANT ACETATE
     Dosage: ???OTHER FREQUENCY : UD
     Route: 058

REACTIONS (1)
  - Hereditary angioedema [None]

NARRATIVE: CASE EVENT DATE: 20211015
